FAERS Safety Report 10965800 (Version 1)
Quarter: 2015Q1

REPORT INFORMATION
  Report Type: Report from Study
  Country: CA (occurrence: CA)
  Receive Date: 20150330
  Receipt Date: 20150330
  Transmission Date: 20150721
  Serious: Yes (Life-Threatening, Hospitalization)
  Sender: FDA-Public Use
  Company Number: CA-JNJFOC-20150318881

PATIENT
  Age: 70 Year
  Sex: Male
  Weight: 73.94 kg

DRUGS (1)
  1. SIMPONI [Suspect]
     Active Substance: GOLIMUMAB
     Indication: RHEUMATOID ARTHRITIS
     Route: 058
     Dates: start: 201211

REACTIONS (4)
  - Necrotising fasciitis [Unknown]
  - Myocardial infarction [Unknown]
  - Cholecystectomy [Unknown]
  - Pancreatitis [Unknown]

NARRATIVE: CASE EVENT DATE: 201502
